FAERS Safety Report 7275369-3 (Version None)
Quarter: 2011Q1

REPORT INFORMATION
  Report Type: 
  Country: None (occurrence: None)
  Receive Date: 20110204
  Receipt Date: 20110125
  Transmission Date: 20110831
  Serious: Yes (Hospitalization)
  Sender: FDA-Public Use
  Company Number: HU-ELI_LILLY_AND_COMPANY-HU201012001697

PATIENT
  Age: 59 Year
  Sex: Male

DRUGS (4)
  1. INVEGA [Concomitant]
  2. ZYPADHERA [Suspect]
     Indication: SCHIZOPHRENIA
     Dosage: 300 MG, MONTHLY (1/M)
     Route: 030
     Dates: start: 20100601
  3. ZYPREXA [Suspect]
     Dosage: 20 MG, DAILY (1/D)
     Route: 065
  4. HALOPERIDOL [Concomitant]
     Dosage: UNK, UNKNOWN
     Route: 065

REACTIONS (5)
  - DYSARTHRIA [None]
  - SOMNOLENCE [None]
  - DIZZINESS [None]
  - CONSCIOUSNESS FLUCTUATING [None]
  - INJECTION SITE HAEMORRHAGE [None]
